FAERS Safety Report 13510927 (Version 1)
Quarter: 2017Q2

REPORT INFORMATION
  Report Type: Spontaneous
  Country: US (occurrence: US)
  Receive Date: 20170503
  Receipt Date: 20170503
  Transmission Date: 20170830
  Serious: Yes (Hospitalization)
  Sender: FDA-Public Use
  Company Number: None

PATIENT
  Age: 35 Year
  Sex: Female
  Weight: 58.5 kg

DRUGS (1)
  1. DOXYCYCLINE. [Suspect]
     Active Substance: DOXYCYCLINE
     Indication: GINGIVITIS
     Dosage: ?          QUANTITY:1 CAPSULE(S);?
     Route: 048
     Dates: start: 20160706, end: 20160708

REACTIONS (10)
  - Nervousness [None]
  - Feeling abnormal [None]
  - Dyspnoea [None]
  - Asthenia [None]
  - Nausea [None]
  - Limb discomfort [None]
  - Trismus [None]
  - Dysstasia [None]
  - Hyperhidrosis [None]
  - Tremor [None]

NARRATIVE: CASE EVENT DATE: 20160708
